FAERS Safety Report 22080088 (Version 1)
Quarter: 2023Q1

REPORT INFORMATION
  Report Type: Spontaneous
  Country: LV (occurrence: None)
  Receive Date: 20230309
  Receipt Date: 20230309
  Transmission Date: 20230418
  Serious: Yes (Other)
  Sender: FDA-Public Use
  Company Number: 2023A054360

PATIENT
  Age: 26 Year
  Sex: Female

DRUGS (4)
  1. QUETIAPINE [Suspect]
     Active Substance: QUETIAPINE
     Indication: Brief psychotic disorder, with postpartum onset
     Route: 048
  2. OLANZAPINE [Concomitant]
     Active Substance: OLANZAPINE
     Indication: Brief psychotic disorder, with postpartum onset
  3. HALOPERIDOL [Concomitant]
     Active Substance: HALOPERIDOL
     Indication: Brief psychotic disorder, with postpartum onset
  4. CLOZAPINE [Concomitant]
     Active Substance: CLOZAPINE
     Indication: Brief psychotic disorder, with postpartum onset

REACTIONS (2)
  - Drug resistance [Unknown]
  - Therapeutic product effect incomplete [Unknown]
